FAERS Safety Report 6463404-1 (Version None)
Quarter: 2009Q4

REPORT INFORMATION
  Report Type: 
  Country: None (occurrence: None)
  Receive Date: 20091201
  Receipt Date: 20090914
  Transmission Date: 20100525
  Serious: Yes (Hospitalization)
  Sender: FDA-Public Use
  Company Number: US-AMGEN-QUU364533

PATIENT
  Age: 19 Year
  Sex: Female

DRUGS (8)
  1. ENBREL [Suspect]
     Indication: DRUG USE FOR UNKNOWN INDICATION
     Dates: end: 20090801
  2. SILDENAFIL CITRATE [Suspect]
  3. METHOTREXATE [Suspect]
  4. PREDNISONE [Suspect]
  5. OSCAL [Suspect]
  6. UNSPECIFIED MEDICATION [Suspect]
     Dates: start: 20090301
  7. NAPROSYN [Concomitant]
  8. PREVACID [Concomitant]

REACTIONS (1)
  - SUBCUTANEOUS ABSCESS [None]
